FAERS Safety Report 26007877 (Version 1)
Quarter: 2025Q4

REPORT INFORMATION
  Report Type: Spontaneous
  Country: US (occurrence: US)
  Receive Date: 20251106
  Receipt Date: 20251106
  Transmission Date: 20260117
  Serious: Yes (Other)
  Sender: ELI LILLY AND COMPANY
  Company Number: US-ELI_LILLY_AND_COMPANY-US202511001000

PATIENT

DRUGS (1)
  1. TRULICITY [Suspect]
     Active Substance: DULAGLUTIDE
     Indication: Product used for unknown indication
     Dosage: UNK UNK, UNKNOWN
     Route: 065
     Dates: start: 202202, end: 202401

REACTIONS (5)
  - Ileus [Unknown]
  - Intestinal obstruction [Unknown]
  - Gastrointestinal injury [Unknown]
  - Diarrhoea [Unknown]
  - Abdominal pain [Unknown]
